FAERS Safety Report 9413016 (Version 1)
Quarter: 2013Q3

REPORT INFORMATION
  Report Type: Spontaneous
  Country: US (occurrence: US)
  Receive Date: 20130722
  Receipt Date: 20130722
  Transmission Date: 20140515
  Serious: Yes (Hospitalization)
  Sender: FDA-Public Use
  Company Number: US-GLAXOSMITHKLINE-A1033589A

PATIENT
  Age: 62 Year
  Sex: Male

DRUGS (6)
  1. ADVAIR [Suspect]
     Indication: CHRONIC OBSTRUCTIVE PULMONARY DISEASE
     Dosage: 1PUFF TWICE PER DAY
     Route: 055
     Dates: start: 201304
  2. VENTOLIN [Suspect]
     Indication: CHRONIC OBSTRUCTIVE PULMONARY DISEASE
     Route: 055
     Dates: start: 2010
  3. CITALOPRAM [Concomitant]
  4. DILTIAZEM [Concomitant]
  5. DIGOXIN [Concomitant]
  6. SPIRIVA [Concomitant]

REACTIONS (3)
  - Pneumonia [Recovering/Resolving]
  - Chronic obstructive pulmonary disease [Recovering/Resolving]
  - Dyspnoea [Unknown]
